FAERS Safety Report 12975446 (Version 1)
Quarter: 2016Q4

REPORT INFORMATION
  Report Type: Spontaneous
  Country: US (occurrence: US)
  Receive Date: 20161122
  Receipt Date: 20161122
  Transmission Date: 20170207
  Serious: No
  Sender: FDA-Public Use
  Company Number: None

PATIENT
  Age: 72 Year
  Sex: Male
  Weight: 129.5 kg

DRUGS (1)
  1. INTRON A [Suspect]
     Active Substance: INTERFERON ALFA-2B
     Dosage: 5 MU
     Dates: end: 20140502

REACTIONS (2)
  - Blood sodium decreased [None]
  - Therapy cessation [None]

NARRATIVE: CASE EVENT DATE: 20140505
